FAERS Safety Report 16748095 (Version 1)
Quarter: 2019Q3

REPORT INFORMATION
  Report Type: Spontaneous
  Country: US (occurrence: US)
  Receive Date: 20190827
  Receipt Date: 20190827
  Transmission Date: 20191005
  Serious: Yes (Hospitalization)
  Sender: FDA-Public Use
  Company Number: US-THE RITEDOSE CORPORATION-2019RIT000242

PATIENT

DRUGS (2)
  1. ALBUTEROL SULFATE INHALATION SOLUTION [Suspect]
     Active Substance: ALBUTEROL SULFATE
     Indication: PRODUCTIVE COUGH
     Dosage: UNK UNK, Q4H
     Route: 065
  2. ALPRAZOLAM. [Concomitant]
     Active Substance: ALPRAZOLAM
     Indication: INSOMNIA
     Dosage: UNK

REACTIONS (6)
  - Productive cough [Unknown]
  - Dyspnoea [Unknown]
  - Glaucoma [Unknown]
  - Bronchitis chronic [Unknown]
  - Bladder disorder [Unknown]
  - Joint swelling [Unknown]
